FAERS Safety Report 12909384 (Version 1)
Quarter: 2016Q4

REPORT INFORMATION
  Report Type: Spontaneous
  Country: GB (occurrence: GB)
  Receive Date: 20161104
  Receipt Date: 20161104
  Transmission Date: 20170207
  Serious: Yes (Disabling)
  Sender: FDA-Public Use
  Company Number: GB-ORION CORPORATION ORION PHARMA-TREX2016-2168

PATIENT
  Age: 42 Year
  Sex: Female

DRUGS (2)
  1. EVOREL [Concomitant]
     Dosage: 100 (UNITS UNSPECIFIED)
     Route: 065
  2. METHOTREXATE (TRADE NAME UNKNOWN) [Suspect]
     Active Substance: METHOTREXATE
     Indication: RHEUMATOID ARTHRITIS
     Dosage: STRENGTH: 2.5 MG
     Route: 048
     Dates: end: 2013

REACTIONS (1)
  - Premature menopause [Not Recovered/Not Resolved]
